FAERS Safety Report 25784725 (Version 1)
Quarter: 2025Q3

REPORT INFORMATION
  Report Type: Report from Study
  Country: US (occurrence: US)
  Receive Date: 20250910
  Receipt Date: 20250910
  Transmission Date: 20251020
  Serious: Yes (Death)
  Sender: ROCHE
  Company Number: US-ROCHE-10000357123

PATIENT
  Age: 73 Year
  Sex: Male

DRUGS (2)
  1. HEMLIBRA [Suspect]
     Active Substance: EMICIZUMAB-KXWH
     Indication: Acquired haemophilia
     Dosage: INJECT 1ML (150 MG) SUBCUTANEOUSLY EVERY 7 DAY(S)?FORM STRENGTH: 150 MG/ML, DATE OF SERVICE: 26-APR-
     Route: 058
  2. HEMLIBRA [Suspect]
     Active Substance: EMICIZUMAB-KXWH
     Indication: Coagulation factor deficiency

REACTIONS (2)
  - Death [Fatal]
  - Off label use [Unknown]
